FAERS Safety Report 5910955-1 (Version None)
Quarter: 2008Q4

REPORT INFORMATION
  Report Type: 
  Country: None (occurrence: None)
  Receive Date: 20081003
  Receipt Date: 20081003
  Transmission Date: 20090506
  Serious: Yes (Other)
  Sender: FDA-Public Use
  Company Number: None

PATIENT
  Sex: Female
  Weight: 99.7913 kg

DRUGS (2)
  1. SUNITINIB 25 MG [Suspect]
     Indication: RENAL CANCER
     Dosage: 25MG DAILY PO
     Route: 048
     Dates: start: 20060920, end: 20080206
  2. SORAFENIB 200MG [Suspect]
     Indication: RENAL CANCER
     Dosage: 200 MG TWICE DAILY PO
     Route: 048
     Dates: start: 20080430, end: 20080806

REACTIONS (3)
  - BLOOD CREATININE INCREASED [None]
  - NASAL SEPTUM PERFORATION [None]
  - RASH ERYTHEMATOUS [None]
